FAERS Safety Report 5838955-0 (Version None)
Quarter: 2008Q3

REPORT INFORMATION
  Report Type: 
  Country: None (occurrence: None)
  Receive Date: 20080808
  Receipt Date: 20080807
  Transmission Date: 20090109
  Serious: Yes (Death, Hospitalization, Other)
  Sender: FDA-Public Use
  Company Number: PHHO2001ES09235

PATIENT
  Sex: Male
  Weight: 113 kg

DRUGS (5)
  1. RAD 666 RAD+ [Suspect]
     Indication: HEART TRANSPLANT
     Dosage: UNK
     Route: 048
     Dates: start: 19990331
  2. RAD 666 / RAD 001A [Suspect]
     Indication: HEART TRANSPLANT
     Dosage: 0.75 MG BID
     Route: 048
     Dates: start: 20010401
  3. NEORAL [Suspect]
     Indication: HEART TRANSPLANT
     Dosage: 100 MG, BID
     Route: 048
     Dates: start: 20010510
  4. DEFLAZACORT [Concomitant]
     Indication: HEART TRANSPLANT
     Dosage: 18 MG, QD
     Route: 048
     Dates: start: 20010510, end: 20011003
  5. DEFLAZACORT [Concomitant]
     Dosage: 12 MG, QD
     Route: 048
     Dates: start: 20011004

REACTIONS (8)
  - ABSCESS DRAINAGE [None]
  - MASTOIDECTOMY [None]
  - MULTI-ORGAN FAILURE [None]
  - NEOPLASM [None]
  - PAIN [None]
  - PAROTID ABSCESS [None]
  - SKIN NEOPLASM EXCISION [None]
  - SURGERY [None]
